FAERS Safety Report 16730116 (Version 1)
Quarter: 2019Q3

REPORT INFORMATION
  Report Type: Spontaneous
  Country: US (occurrence: US)
  Receive Date: 20190822
  Receipt Date: 20190822
  Transmission Date: 20191005
  Serious: No
  Sender: FDA-Public Use
  Company Number: US-PACIRA-201800181

PATIENT
  Age: 50 Year
  Sex: Female
  Weight: 63 kg

DRUGS (1)
  1. EXPAREL [Suspect]
     Active Substance: BUPIVACAINE
     Indication: POSTOPERATIVE ANALGESIA
     Dosage: 20 ML, SINGLE WITH 280 ML SALINE, FREQUENCY : SINGLE
     Dates: start: 20180425, end: 20180425

REACTIONS (3)
  - Asthenia [Unknown]
  - Sciatic nerve injury [Not Recovered/Not Resolved]
  - Sensory loss [Not Recovered/Not Resolved]
